FAERS Safety Report 13906960 (Version 1)
Quarter: 2017Q3

REPORT INFORMATION
  Report Type: Report from Study
  Country: US (occurrence: BR)
  Receive Date: 20170825
  Receipt Date: 20170825
  Transmission Date: 20171127
  Serious: Yes (Other)
  Sender: FDA-Public Use
  Company Number: US-SUNOVION-2017SUN003746

PATIENT
  Age: 78 Year
  Sex: Female
  Weight: 58 kg

DRUGS (2)
  1. INDACATEROL AND GLYCOPYRROLATE [Suspect]
     Active Substance: GLYCOPYRROLATE\INDACATEROL MALEATE
     Indication: FATIGUE
  2. INDACATEROL AND GLYCOPYRROLATE [Suspect]
     Active Substance: GLYCOPYRROLATE\INDACATEROL MALEATE
     Indication: DYSPNOEA
     Dosage: 1 DF (50 GLYCOPYRRONIUM/110  INDACATEROL ) QD
     Route: 055

REACTIONS (6)
  - Peripheral swelling [Recovering/Resolving]
  - Femur fracture [Unknown]
  - Pelvic fracture [Unknown]
  - Cervical vertebral fracture [Unknown]
  - Product use in unapproved indication [Unknown]
  - Mobility decreased [Unknown]

NARRATIVE: CASE EVENT DATE: 201602
